FAERS Safety Report 14477373 (Version 1)
Quarter: 2018Q1

REPORT INFORMATION
  Report Type: Report from Study
  Country: US (occurrence: US)
  Receive Date: 20180201
  Receipt Date: 20180201
  Transmission Date: 20180509
  Serious: No
  Sender: FDA-Public Use
  Company Number: US-EXELIXIS-CABO-17011367

PATIENT
  Sex: Male

DRUGS (23)
  1. ACETAMINOPHEN. [Concomitant]
     Active Substance: ACETAMINOPHEN
  2. OXYCODONE HYDROCHLORIDE. [Concomitant]
     Active Substance: OXYCODONE HYDROCHLORIDE
  3. PROMETHAZINE VC [Concomitant]
     Active Substance: PHENYLEPHRINE HYDROCHLORIDE\PROMETHAZINE HYDROCHLORIDE
  4. TRIAMCINOLONE ACETONIDE. [Concomitant]
     Active Substance: TRIAMCINOLONE ACETONIDE
  5. ALPRAZOLAM. [Concomitant]
     Active Substance: ALPRAZOLAM
  6. MEGACE [Concomitant]
     Active Substance: MEGESTROL ACETATE
  7. SUPREP BOWEL PREP [Concomitant]
     Active Substance: MAGNESIUM SULFATE\POTASSIUM SULFATE\SODIUM SULFATE
  8. METOPROLOL TARTRATE. [Concomitant]
     Active Substance: METOPROLOL TARTRATE
  9. DULOXETINE HCL [Concomitant]
     Active Substance: DULOXETINE HYDROCHLORIDE
  10. LEVETIRACETAM. [Concomitant]
     Active Substance: LEVETIRACETAM
  11. PROCHLORPERAZINE MALEATE. [Concomitant]
     Active Substance: PROCHLORPERAZINE MALEATE
  12. MORPHINE SULFATE. [Concomitant]
     Active Substance: MORPHINE SULFATE
  13. CABOMETYX [Suspect]
     Active Substance: CABOZANTINIB S-MALATE
     Indication: RENAL CANCER
     Dosage: 60 MG, QD
     Route: 048
     Dates: start: 20170403
  14. PROVENTIL HFA [Concomitant]
     Active Substance: ALBUTEROL SULFATE
  15. CASODEX [Concomitant]
     Active Substance: BICALUTAMIDE
  16. LOPRESSOR [Concomitant]
     Active Substance: METOPROLOL TARTRATE
  17. LUMIGAN [Concomitant]
     Active Substance: BIMATOPROST
  18. PREDNISONE. [Concomitant]
     Active Substance: PREDNISONE
  19. VENTOLIN HFA [Concomitant]
     Active Substance: ALBUTEROL SULFATE
  20. ATORVASTATIN CALCIUM. [Concomitant]
     Active Substance: ATORVASTATIN CALCIUM
  21. CYMBALTA [Concomitant]
     Active Substance: DULOXETINE HYDROCHLORIDE
  22. ALPHAGAN P [Concomitant]
     Active Substance: BRIMONIDINE TARTRATE
  23. DEXAMETHASONE. [Concomitant]
     Active Substance: DEXAMETHASONE

REACTIONS (2)
  - Erythema [Unknown]
  - Fatigue [Unknown]
